FAERS Safety Report 7299730-6 (Version None)
Quarter: 2011Q1

REPORT INFORMATION
  Report Type: 
  Country: None (occurrence: None)
  Receive Date: 20110217
  Receipt Date: 20101130
  Transmission Date: 20110831
  Serious: Yes (Other)
  Sender: FDA-Public Use
  Company Number: DE-BAYER-2010-004710

PATIENT
  Sex: Female

DRUGS (1)
  1. MIRENA [Suspect]
     Route: 015

REACTIONS (1)
  - DEVICE DISLOCATION [None]
